FAERS Safety Report 7331219-8 (Version None)
Quarter: 2011Q1

REPORT INFORMATION
  Report Type: 
  Country: None (occurrence: None)
  Receive Date: 20110304
  Receipt Date: 20110228
  Transmission Date: 20110831
  Serious: Yes (Other)
  Sender: FDA-Public Use
  Company Number: US-PFIZER INC-2011043684

PATIENT
  Sex: Male

DRUGS (3)
  1. SUTENT [Suspect]
     Indication: RENAL CELL CARCINOMA
     Dosage: 50 MG, 1X/DAY
     Route: 048
     Dates: start: 20100701
  2. COREG [Concomitant]
     Indication: HYPERTENSION
     Dosage: UNK
  3. VALSARTAN [Concomitant]
     Indication: HYPERTENSION
     Dosage: UNK

REACTIONS (8)
  - FAECES DISCOLOURED [None]
  - SINUSITIS [None]
  - OROPHARYNGEAL PAIN [None]
  - HYPOTHYROIDISM [None]
  - INFLUENZA [None]
  - HYPERTENSION [None]
  - GASTROENTERITIS VIRAL [None]
  - DYSGEUSIA [None]
